FAERS Safety Report 9128876 (Version 1)
Quarter: 2013Q1

REPORT INFORMATION
  Report Type: Spontaneous
  Country: US (occurrence: US)
  Receive Date: 20130228
  Receipt Date: 20130228
  Transmission Date: 20140127
  Serious: Yes (Other)
  Sender: FDA-Public Use
  Company Number: US-ROXANE LABORATORIES, INC.-2013-RO-00282RO

PATIENT
  Age: 57 Year
  Sex: Male

DRUGS (3)
  1. MORPHINE [Suspect]
     Indication: BACK PAIN
     Dosage: 960 MG
     Route: 048
  2. OXYCODONE [Suspect]
     Indication: BACK PAIN
     Dosage: 360 MG
     Route: 048
  3. PREGABALIN [Concomitant]
     Indication: BACK PAIN
     Dosage: 600 MG
     Route: 048

REACTIONS (1)
  - Drug screen false positive [Recovered/Resolved]
